FAERS Safety Report 17087130 (Version 1)
Quarter: 2019Q4

REPORT INFORMATION
  Report Type: Spontaneous
  Country: US (occurrence: US)
  Receive Date: 20191128
  Receipt Date: 20191128
  Transmission Date: 20200122
  Serious: Yes (Hospitalization)
  Sender: FDA-Public Use
  Company Number: US-GLAND PHARMA LIMITED-2077287

PATIENT
  Age: 72 Year
  Sex: Female

DRUGS (1)
  1. ROCURONIUM BROMIDE. [Suspect]
     Active Substance: ROCURONIUM BROMIDE
     Indication: INDUCTION AND MAINTENANCE OF ANAESTHESIA

REACTIONS (1)
  - Myasthenic syndrome [Recovering/Resolving]
